FAERS Safety Report 17544986 (Version 1)
Quarter: 2020Q1

REPORT INFORMATION
  Report Type: Spontaneous
  Country: GB (occurrence: GB)
  Receive Date: 20200316
  Receipt Date: 20200316
  Transmission Date: 20200409
  Serious: Yes (Other)
  Sender: FDA-Public Use
  Company Number: GB-PFIZER INC-2020107889

PATIENT
  Age: 34 Year
  Sex: Female
  Weight: 85 kg

DRUGS (1)
  1. HYDROCORTISONE SODIUM SUCCINATE [Suspect]
     Active Substance: HYDROCORTISONE SODIUM SUCCINATE
     Indication: ANAPHYLACTIC REACTION
     Dosage: 160 MG, (INTENDED DOSE 200MG) 100MG IN 1ML
     Route: 042
     Dates: start: 20200109, end: 20200109

REACTIONS (3)
  - Tonic clonic movements [Recovered/Resolved]
  - Nervousness [Recovered/Resolved]
  - Generalised tonic-clonic seizure [Recovered/Resolved]

NARRATIVE: CASE EVENT DATE: 20200109
